FAERS Safety Report 23450938 (Version 1)
Quarter: 2024Q1

REPORT INFORMATION
  Report Type: Spontaneous
  Country: US (occurrence: None)
  Receive Date: 20240126
  Receipt Date: 20240126
  Transmission Date: 20240409
  Serious: Yes (Other)
  Sender: FDA-Public Use
  Company Number: None

PATIENT
  Age: 53 Year
  Sex: Female
  Weight: 140.4 kg

DRUGS (1)
  1. GAVILYTE G [Suspect]
     Active Substance: POLYETHYLENE GLYCOL 3350\POTASSIUM CHLORIDE\SODIUM BICARBONATE\SODIUM CHLORIDE\SODIUM SULFATE
     Indication: Bowel preparation
     Dosage: DAILY ORAL
     Route: 048
     Dates: start: 20240111, end: 20240111

REACTIONS (4)
  - Abdominal distension [None]
  - Pain [None]
  - Retching [None]
  - Illness [None]

NARRATIVE: CASE EVENT DATE: 20240111
